FAERS Safety Report 19465821 (Version 2)
Quarter: 2021Q2

REPORT INFORMATION
  Report Type: Spontaneous
  Country: US (occurrence: US)
  Receive Date: 20210626
  Receipt Date: 20210626
  Transmission Date: 20210717
  Serious: Yes (Hospitalization, Other)
  Sender: FDA-Public Use
  Company Number: US-TEVA-2021-US-1925330

PATIENT
  Sex: Female
  Weight: 86.26 kg

DRUGS (10)
  1. ESTRADIOL. [Suspect]
     Active Substance: ESTRADIOL
     Indication: PRODUCT USED FOR UNKNOWN INDICATION
     Dosage: 2 MILLIGRAM DAILY;
     Route: 065
  2. DEXILANT [Suspect]
     Active Substance: DEXLANSOPRAZOLE
     Indication: GASTROOESOPHAGEAL REFLUX DISEASE
     Dosage: 60 MILLIGRAM DAILY;
     Route: 048
     Dates: start: 2011
  3. PREVACID [Suspect]
     Active Substance: LANSOPRAZOLE
     Indication: GASTROOESOPHAGEAL REFLUX DISEASE
     Route: 065
  4. DEXILANT [Suspect]
     Active Substance: DEXLANSOPRAZOLE
     Route: 048
  5. ROSUVASTATIN CALCIUM (ROSUVASTATIN) [Suspect]
     Active Substance: ROSUVASTATIN CALCIUM
     Indication: PRODUCT USE ISSUE
     Dosage: 10 MILLIGRAM DAILY;
     Route: 065
  6. BRILINTA [Suspect]
     Active Substance: TICAGRELOR
     Indication: ANTICOAGULANT THERAPY
     Route: 065
  7. BACLOFEN. [Suspect]
     Active Substance: BACLOFEN
     Indication: PRODUCT USED FOR UNKNOWN INDICATION
     Dosage: 30 MILLIGRAM DAILY;
     Route: 065
  8. METOPROLOL TARTRATE (METOPROLOL) [Suspect]
     Active Substance: METOPROLOL TARTRATE
     Dosage: 50 MILLIGRAM DAILY;
     Route: 065
  9. FENOFIBRATE. [Suspect]
     Active Substance: FENOFIBRATE
     Indication: PRODUCT USED FOR UNKNOWN INDICATION
     Dosage: 145 MILLIGRAM DAILY;
     Route: 065
  10. POTASSIUM GLUCONATE (POTASSIUM) [Suspect]
     Active Substance: POTASSIUM GLUCONATE
     Indication: PRODUCT USED FOR UNKNOWN INDICATION
     Route: 065

REACTIONS (10)
  - Blood glucose increased [Unknown]
  - Pain [Unknown]
  - Vitamin D decreased [Unknown]
  - Anxiety [Unknown]
  - Illness [Unknown]
  - Hiatus hernia [Unknown]
  - Myocardial infarction [Unknown]
  - Arthritis [Unknown]
  - Dyspnoea [Unknown]
  - Stent placement [Unknown]
